FAERS Safety Report 9378205 (Version 1)
Quarter: 2013Q3

REPORT INFORMATION
  Report Type: Spontaneous
  Country: AU (occurrence: AU)
  Receive Date: 20130701
  Receipt Date: 20130701
  Transmission Date: 20140515
  Serious: Yes (Disabling)
  Sender: FDA-Public Use
  Company Number: AU-GLAXOSMITHKLINE-B0904402A

PATIENT
  Sex: Female

DRUGS (2)
  1. LAMICTAL [Suspect]
     Indication: PARTIAL SEIZURES
     Route: 048
     Dates: start: 2006
  2. OSPOLOT [Concomitant]
     Dates: start: 20100521

REACTIONS (2)
  - Partial seizures [Recovered/Resolved]
  - Drug ineffective [Recovered/Resolved]
